FAERS Safety Report 6691797-9 (Version None)
Quarter: 2010Q2

REPORT INFORMATION
  Report Type: 
  Country: None (occurrence: None)
  Receive Date: 20100422
  Receipt Date: 20090722
  Transmission Date: 20101027
  Serious: Yes (Other)
  Sender: FDA-Public Use
  Company Number: US-ASTRAZENECA-2009UW09311

PATIENT
  Age: 59 Year
  Sex: Female
  Weight: 120.2 kg

DRUGS (2)
  1. TOPROL-XL [Suspect]
     Indication: HYPERTENSION
     Route: 048
     Dates: start: 20060518, end: 20090409
  2. AVALIDE [Concomitant]
     Indication: HYPERTENSION
     Dosage: 30/12.5
     Route: 048
     Dates: start: 20060718

REACTIONS (3)
  - BRONCHOSPASM [None]
  - COUGH [None]
  - DYSPNOEA [None]
